FAERS Safety Report 6945639-4 (Version None)
Quarter: 2010Q3

REPORT INFORMATION
  Report Type: 
  Country: None (occurrence: None)
  Receive Date: 20100827
  Receipt Date: 20100820
  Transmission Date: 20110219
  Serious: Yes (Life-Threatening)
  Sender: FDA-Public Use
  Company Number: JP-MERCK-1007USA03134

PATIENT
  Age: 79 Year
  Sex: Female

DRUGS (7)
  1. JANUVIA [Suspect]
     Indication: TYPE 2 DIABETES MELLITUS
     Route: 048
     Dates: start: 20100120, end: 20100526
  2. COZAAR [Concomitant]
     Route: 048
     Dates: start: 20070516
  3. LIPITOR [Concomitant]
     Route: 065
     Dates: start: 20080416, end: 20100316
  4. AMARYL [Concomitant]
     Route: 065
     Dates: start: 20060412, end: 20070417
  5. AMARYL [Concomitant]
     Route: 065
     Dates: start: 20060418, end: 20090818
  6. AMARYL [Concomitant]
     Route: 065
     Dates: start: 20090819
  7. MEVALOTIN [Concomitant]
     Route: 065
     Dates: start: 20100414

REACTIONS (2)
  - DEPRESSION [None]
  - SUICIDAL IDEATION [None]
